FAERS Safety Report 6413818-0 (Version None)
Quarter: 2009Q4

REPORT INFORMATION
  Report Type: 
  Country: None (occurrence: None)
  Receive Date: 20091026
  Receipt Date: 20091020
  Transmission Date: 20100525
  Serious: Yes (Death)
  Sender: FDA-Public Use
  Company Number: FR-ASTRAZENECA-2004CG00397

PATIENT
  Age: 7 Year
  Sex: Female

DRUGS (2)
  1. MARCAINE [Suspect]
     Indication: ANAESTHESIA
     Route: 008
     Dates: start: 20040101
  2. MARCAINE [Suspect]
     Indication: POSTOPERATIVE ANALGESIA
     Route: 008
     Dates: start: 20040101

REACTIONS (1)
  - DEATH [None]
